FAERS Safety Report 19137626 (Version 2)
Quarter: 2021Q2

REPORT INFORMATION
  Report Type: Spontaneous
  Country: FR (occurrence: FR)
  Receive Date: 20210415
  Receipt Date: 20210624
  Transmission Date: 20210717
  Serious: Yes (Death, Other)
  Sender: FDA-Public Use
  Company Number: FR-AUROBINDO-AUR-APL-2021-015042

PATIENT
  Age: 98 Year
  Sex: Female
  Weight: 43 kg

DRUGS (2)
  1. MIRTAZAPINE. [Suspect]
     Active Substance: MIRTAZAPINE
     Indication: MAJOR DEPRESSION
     Dosage: 15 MILLIGRAM, ONCE A DAY
     Route: 048
     Dates: start: 20210118, end: 20210122
  2. MIANSERIN [Concomitant]
     Active Substance: MIANSERIN
     Indication: MAJOR DEPRESSION
     Dosage: 20 MG PUIS 10 MG A PARTIR DU 18/01/2021
     Route: 048
     Dates: start: 20180403

REACTIONS (1)
  - Sudden death [Fatal]

NARRATIVE: CASE EVENT DATE: 20210123
